FAERS Safety Report 9808524 (Version 2)
Quarter: 2014Q2

REPORT INFORMATION
  Report Type: Report from Study
  Country: CN (occurrence: CN)
  Receive Date: 20140110
  Receipt Date: 20140403
  Transmission Date: 20141212
  Serious: Yes (Hospitalization)
  Sender: FDA-Public Use
  Company Number: CN-MERCK-1401CHN002466

PATIENT
  Age: 63 Year
  Sex: Female

DRUGS (3)
  1. SITAGLIPTIN PHOSPHATE [Suspect]
     Indication: DIABETES MELLITUS
     Dosage: 100 MG DAILY, QD
     Route: 048
     Dates: start: 20131224, end: 20140105
  2. METFORMIN [Suspect]
     Indication: DIABETES MELLITUS
     Dosage: 1500 MG, TID
     Route: 048
     Dates: start: 20131210, end: 20140105
  3. IRBESARTAN [Concomitant]
     Indication: HYPERTENSION
     Dosage: 150 MG, QD
     Route: 048
     Dates: start: 20111015

REACTIONS (1)
  - Drug eruption [Recovered/Resolved]
